FAERS Safety Report 4559888-6 (Version None)
Quarter: 2005Q1

REPORT INFORMATION
  Report Type: 
  Country: None (occurrence: None)
  Receive Date: 20050124
  Receipt Date: 20050117
  Transmission Date: 20050727
  Serious: Yes (Other)
  Sender: FDA-Public Use
  Company Number: US-MERCK-0501USA02843

PATIENT
  Sex: Male

DRUGS (4)
  1. VIOXX [Suspect]
     Route: 048
     Dates: start: 20000928, end: 20010430
  2. VIOXX [Suspect]
     Route: 048
     Dates: start: 20020709, end: 20021113
  3. VIOXX [Suspect]
     Route: 048
     Dates: start: 20030519, end: 20030719
  4. VIOXX [Suspect]
     Route: 048
     Dates: start: 20040217, end: 20040930

REACTIONS (1)
  - RETINAL VASCULAR THROMBOSIS [None]
